FAERS Safety Report 19006326 (Version 1)
Quarter: 2021Q1

REPORT INFORMATION
  Report Type: Spontaneous
  Country: FR (occurrence: FR)
  Receive Date: 20210315
  Receipt Date: 20210315
  Transmission Date: 20210420
  Serious: Yes (Hospitalization)
  Sender: FDA-Public Use
  Company Number: FR-ROCHE-2783498

PATIENT
  Age: 68 Year
  Sex: Female
  Weight: 74.4 kg

DRUGS (3)
  1. XELODA [Suspect]
     Active Substance: CAPECITABINE
     Indication: BREAST CANCER
     Dosage: PENDANT 14 JOURS, ARRET 1 SEMAINE, PUIS REPRISE D^UN NOUVEAU CYCLE
     Route: 048
     Dates: start: 201905
  2. COVERAM [Concomitant]
     Active Substance: AMLODIPINE\PERINDOPRIL
  3. BISOCE [Concomitant]
     Active Substance: BISOPROLOL

REACTIONS (2)
  - Condition aggravated [Not Recovered/Not Resolved]
  - Diabetes mellitus [Not Recovered/Not Resolved]

NARRATIVE: CASE EVENT DATE: 20210120
